FAERS Safety Report 6188511-2 (Version None)
Quarter: 2009Q2

REPORT INFORMATION
  Report Type: 
  Country: None (occurrence: None)
  Receive Date: 20090513
  Receipt Date: 20090331
  Transmission Date: 20091009
  Serious: Yes (Death)
  Sender: FDA-Public Use
  Company Number: FR-ALEXION-A200900178

PATIENT

DRUGS (2)
  1. SOLIRIS [Suspect]
     Indication: PAROXYSMAL NOCTURNAL HAEMOGLOBINURIA
     Dosage: INITIATION PHASE
     Dates: start: 20070711
  2. SOLIRIS [Suspect]
     Dosage: MAINTENANCE PHASE
     Dates: end: 20081204

REACTIONS (2)
  - HAEMORRHAGE [None]
  - THROMBOSIS [None]
